FAERS Safety Report 8820545 (Version 1)
Quarter: 2012Q4

REPORT INFORMATION
  Report Type: 
  Country: US (occurrence: US)
  Receive Date: 20121002
  Receipt Date: 20121002
  Transmission Date: 20130627
  Serious: No
  Sender: FDA-Public Use
  Company Number: US-BAYER-2012-102366

PATIENT
  Age: 27 Year
  Sex: Female

DRUGS (2)
  1. BETASERON [Suspect]
     Dosage: 0.25 mg (1ML) every other day
     Route: 058
  2. VITAMIN B12 [CYANOCOBALAMIN] [Concomitant]
     Route: 048

REACTIONS (1)
  - Headache [Unknown]
